FAERS Safety Report 7997533-8 (Version None)
Quarter: 2011Q4

REPORT INFORMATION
  Report Type: 
  Country: None (occurrence: None)
  Receive Date: 20111221
  Receipt Date: 20111219
  Transmission Date: 20120403
  Serious: Yes (Other)
  Sender: FDA-Public Use
  Company Number: FR-PFIZER INC-2011307537

PATIENT
  Age: 48 Year
  Sex: Female

DRUGS (2)
  1. VARENICLINE TARTRATE [Suspect]
     Dosage: UNK
     Dates: start: 20110711, end: 20111025
  2. VARENICLINE TARTRATE [Suspect]
     Dosage: 1 MG, 1X/DAY
     Dates: start: 20111026, end: 20111202

REACTIONS (6)
  - INSOMNIA [None]
  - BLOOD PRESSURE INCREASED [None]
  - ABNORMAL DREAMS [None]
  - HEADACHE [None]
  - NAUSEA [None]
  - VOMITING [None]
